FAERS Safety Report 5884592-1 (Version None)
Quarter: 2008Q3

REPORT INFORMATION
  Report Type: 
  Country: None (occurrence: None)
  Receive Date: 20080915
  Receipt Date: 20080915
  Transmission Date: 20090109
  Serious: Yes (Other)
  Sender: FDA-Public Use
  Company Number: None

PATIENT
  Age: 5 Year
  Sex: Male
  Weight: 19.5047 kg

DRUGS (5)
  1. MONTELUKAST SODIUM [Suspect]
     Indication: FOOD ALLERGY
     Dosage: 4 MG ONCE DAILY IN A.M. PO
     Route: 048
     Dates: start: 20080907, end: 20080912
  2. MONTELUKAST SODIUM [Suspect]
     Indication: RHINITIS ALLERGIC
     Dosage: 4 MG ONCE DAILY IN A.M. PO
     Route: 048
     Dates: start: 20080907, end: 20080912
  3. MULTI-VITAMIN [Concomitant]
  4. NASONEX [Concomitant]
  5. LORATADINE [Concomitant]

REACTIONS (5)
  - CHILLS [None]
  - DRUG INTOLERANCE [None]
  - FEAR [None]
  - FORMICATION [None]
  - SLEEP TERROR [None]
